FAERS Safety Report 8161567-3 (Version None)
Quarter: 2012Q1

REPORT INFORMATION
  Report Type: 
  Country: None (occurrence: None)
  Receive Date: 20120224
  Receipt Date: 20120215
  Transmission Date: 20120608
  Serious: Yes (Death, Other)
  Sender: FDA-Public Use
  Company Number: JP-GENZYME-THYM-1002802

PATIENT
  Sex: Male
  Weight: 56 kg

DRUGS (19)
  1. TACROLIMUS [Concomitant]
     Indication: ACUTE GRAFT VERSUS HOST DISEASE
     Dosage: UNK
     Route: 065
     Dates: start: 20100806, end: 20101206
  2. VANCOMYCIN HYDROCHLORIDE [Concomitant]
     Indication: INFECTION PROPHYLAXIS
     Dosage: UNK
     Dates: start: 20101017, end: 20101206
  3. THYMOGLOBULIN [Suspect]
     Indication: BONE MARROW CONDITIONING REGIMEN
     Dosage: 35 MG, QD (OVER 6 HOURS)
     Route: 042
     Dates: start: 20100806, end: 20100806
  4. THYMOGLOBULIN [Suspect]
     Dosage: 50 MG, QD
     Route: 042
     Dates: start: 20101020, end: 20101020
  5. THYMOGLOBULIN [Suspect]
     Dosage: 50 MG, QD
     Route: 042
     Dates: start: 20101110, end: 20101110
  6. MELPHALAN [Concomitant]
     Indication: BONE MARROW CONDITIONING REGIMEN
     Dosage: UNK
     Route: 065
     Dates: start: 20100805, end: 20100806
  7. FLUDARABINE PHOSPHATE [Concomitant]
     Indication: BONE MARROW CONDITIONING REGIMEN
     Dosage: UNK
     Route: 065
     Dates: start: 20100731, end: 20100805
  8. VORICONAZOLE [Concomitant]
     Indication: INFECTION PROPHYLAXIS
     Dosage: UNK
     Dates: start: 20100729, end: 20101206
  9. THYMOGLOBULIN [Suspect]
     Indication: ACUTE GRAFT VERSUS HOST DISEASE
     Dosage: 50 MG, QD (OVER 6 HOURS)
     Route: 042
     Dates: start: 20100807, end: 20100808
  10. THYMOGLOBULIN [Suspect]
     Dosage: 50 MG, QD
     Route: 042
     Dates: start: 20101117, end: 20101117
  11. CEFTAZIDIME [Concomitant]
     Indication: INFECTION PROPHYLAXIS
     Dosage: UNK
     Dates: start: 20101009, end: 20101206
  12. CORTICOSTEROID NOS [Concomitant]
     Indication: ACUTE GRAFT VERSUS HOST DISEASE
     Dosage: UNK
     Route: 065
     Dates: start: 20100806, end: 20101206
  13. THYMOGLOBULIN [Suspect]
     Dosage: 50 MG, QD
     Route: 042
     Dates: start: 20101126, end: 20101126
  14. TACROLIMUS [Concomitant]
     Indication: ACUTE MYELOID LEUKAEMIA
  15. THYMOGLOBULIN [Suspect]
     Dosage: 50 MG, QD
     Route: 042
     Dates: start: 20101027, end: 20101027
  16. THYMOGLOBULIN [Suspect]
     Dosage: 50 MG, QD
     Route: 042
     Dates: start: 20101103, end: 20101103
  17. CYTARABINE [Concomitant]
     Indication: BONE MARROW CONDITIONING REGIMEN
     Dosage: UNK
     Route: 065
     Dates: start: 20100726, end: 20100803
  18. METHYLPREDNISOLONE SODIUM SUCCINATE [Concomitant]
     Indication: ACUTE MYELOID LEUKAEMIA
     Dosage: UNK
     Dates: start: 20100806, end: 20101206
  19. MICAFUNGIN SODIUM [Concomitant]
     Indication: INFECTION PROPHYLAXIS
     Dosage: UNK
     Dates: start: 20100914, end: 20101206

REACTIONS (2)
  - ACUTE GRAFT VERSUS HOST DISEASE IN LIVER [None]
  - PNEUMOCYSTIS JIROVECI PNEUMONIA [None]
